FAERS Safety Report 6775202-X (Version None)
Quarter: 2010Q2

REPORT INFORMATION
  Report Type: 
  Country: None (occurrence: None)
  Receive Date: 20100617
  Receipt Date: 20100603
  Transmission Date: 20101027
  Serious: Yes (Hospitalization)
  Sender: FDA-Public Use
  Company Number: GB-ABBOTT-10P-167-0649294-00

PATIENT
  Age: 76 Year
  Sex: Female
  Weight: 65 kg

DRUGS (6)
  1. HUMIRA [Suspect]
     Indication: RHEUMATOID ARTHRITIS
     Route: 058
     Dates: start: 20080801, end: 20100501
  2. WARFARIN [Concomitant]
     Indication: ATRIAL FIBRILLATION
     Dosage: LONG TERM
     Route: 048
  3. SOTALOL [Concomitant]
     Indication: HYPERTENSION
     Dosage: LONG TERM
     Route: 048
  4. AMLODIPINE [Concomitant]
     Indication: HYPERTENSION
     Route: 048
  5. LANSOPRAZOLE [Concomitant]
     Indication: DYSPEPSIA
     Dosage: LONG TERM- DAIILY
     Route: 048
  6. TRAMADOL [Concomitant]
     Indication: ANALGESIC THERAPY
     Dosage: LONG TERM- DAILY
     Route: 048

REACTIONS (4)
  - ANAL ABSCESS [None]
  - BACK PAIN [None]
  - FATIGUE [None]
  - MALAISE [None]
